FAERS Safety Report 4975608-5 (Version None)
Quarter: 2006Q2

REPORT INFORMATION
  Report Type: 
  Country: None (occurrence: None)
  Receive Date: 20060411
  Receipt Date: 20060328
  Transmission Date: 20061013
  Serious: Yes (Hospitalization, Other)
  Sender: FDA-Public Use
  Company Number: 02100-JPN-06-0085

PATIENT
  Age: 78 Year
  Sex: Male

DRUGS (12)
  1. CILOSTAZOL [Suspect]
     Indication: LACUNAR INFARCTION
     Dosage: 200 MG ORAL
     Route: 048
     Dates: start: 20040522
  2. ASPIRIN [Concomitant]
  3. PRAVASTATIN SODIUM [Concomitant]
  4. SUPLATAST TOSILATE [Concomitant]
  5. LIMAPROST ALFADEX [Concomitant]
  6. MECOBALAMIN [Concomitant]
  7. TOCOPHEROL CONCENTRATE CAP [Concomitant]
  8. IFENPRODIL TARTRATE [Concomitant]
  9. TIAPRIDE HYDROCHLORIDE [Concomitant]
  10. PIPERACILLIN SODIUM [Concomitant]
  11. SENNOSIDE [Concomitant]
  12. SULTAMICILLIN TOSILATE [Concomitant]

REACTIONS (7)
  - BLOOD PRESSURE SYSTOLIC INCREASED [None]
  - CARDIAC FAILURE [None]
  - DISEASE RECURRENCE [None]
  - HEPATIC FUNCTION ABNORMAL [None]
  - HYPERTENSION [None]
  - LACUNAR INFARCTION [None]
  - PNEUMONIA [None]
